FAERS Safety Report 7751547-1 (Version None)
Quarter: 2011Q3

REPORT INFORMATION
  Report Type: 
  Country: None (occurrence: None)
  Receive Date: 20110914
  Receipt Date: 20110907
  Transmission Date: 20111222
  Serious: Yes (Death)
  Sender: FDA-Public Use
  Company Number: PHHY2011GT79718

PATIENT
  Age: 76 Year
  Sex: Female

DRUGS (1)
  1. EXFORGE [Suspect]
     Dosage: 160 MG VALS AND 10 MG AMLO

REACTIONS (1)
  - DEATH [None]
